FAERS Safety Report 16075908 (Version 2)
Quarter: 2019Q3

REPORT INFORMATION
  Report Type: Report from Study
  Country: IE (occurrence: IE)
  Receive Date: 20190315
  Receipt Date: 20190923
  Transmission Date: 20191004
  Serious: Yes (Hospitalization)
  Sender: FDA-Public Use
  Company Number: IE-EMD SERONO-9077569

PATIENT
  Sex: Female

DRUGS (3)
  1. REBIF [Suspect]
     Active Substance: INTERFERON BETA-1A
     Route: 058
     Dates: start: 20170214
  2. REBIF [Suspect]
     Active Substance: INTERFERON BETA-1A
     Indication: RELAPSING-REMITTING MULTIPLE SCLEROSIS
     Route: 058
     Dates: start: 19990724, end: 20100122
  3. REBIF [Suspect]
     Active Substance: INTERFERON BETA-1A
     Dosage: MULTIDOSE CARTRIDGE
     Route: 058
     Dates: start: 20100122

REACTIONS (3)
  - Chills [Not Recovered/Not Resolved]
  - Chest discomfort [Unknown]
  - Musculoskeletal stiffness [Unknown]
